FAERS Safety Report 25360994 (Version 1)
Quarter: 2025Q2

REPORT INFORMATION
  Report Type: Spontaneous
  Country: CN (occurrence: CN)
  Receive Date: 20250527
  Receipt Date: 20250527
  Transmission Date: 20250717
  Serious: Yes (Other)
  Sender: RANBAXY
  Company Number: CN-SUN PHARMACEUTICAL INDUSTRIES LTD-2025R1-508019

PATIENT
  Age: 22 Year
  Sex: Female

DRUGS (2)
  1. ASPIRIN [Suspect]
     Active Substance: ASPIRIN
     Indication: Carotid arteriosclerosis
     Dosage: 100 MILLIGRAM, DAILY
     Route: 048
     Dates: start: 202310
  2. VERAPAMIL [Suspect]
     Active Substance: VERAPAMIL HYDROCHLORIDE
     Indication: Carotid arteriosclerosis
     Dosage: 40 MILLIGRAM, DAILY
     Route: 048

REACTIONS (1)
  - Carotid artery occlusion [Recovered/Resolved]
